FAERS Safety Report 7219065-7 (Version None)
Quarter: 2011Q1

REPORT INFORMATION
  Report Type: 
  Country: None (occurrence: None)
  Receive Date: 20110111
  Receipt Date: 20090717
  Transmission Date: 20110831
  Serious: No
  Sender: FDA-Public Use
  Company Number: 2009BI022360

PATIENT
  Age: 32 Year
  Sex: Female

DRUGS (1)
  1. TYSABRI [Suspect]
     Indication: MULTIPLE SCLEROSIS
     Route: 042
     Dates: start: 20090708

REACTIONS (9)
  - ANXIETY [None]
  - NAIL DISORDER [None]
  - FATIGUE [None]
  - PAIN [None]
  - ARTHRALGIA [None]
  - PRURITUS [None]
  - ASTHENIA [None]
  - HYPOAESTHESIA [None]
  - HEADACHE [None]
